FAERS Safety Report 14585639 (Version 2)
Quarter: 2018Q1

REPORT INFORMATION
  Report Type: Spontaneous
  Country: US (occurrence: US)
  Receive Date: 20180301
  Receipt Date: 20180329
  Transmission Date: 20180509
  Serious: No
  Sender: FDA-Public Use
  Company Number: US-PFIZER INC-2018083819

PATIENT
  Age: 71 Year
  Sex: Male

DRUGS (3)
  1. NEURONTIN [Suspect]
     Active Substance: GABAPENTIN
     Indication: HERPES ZOSTER
     Dosage: 900 MG, DAILY
     Dates: start: 20171005, end: 20171107
  2. VALTREX [Concomitant]
     Active Substance: VALACYCLOVIR HYDROCHLORIDE
     Dosage: UNK
     Dates: start: 20171005, end: 20171107
  3. TRILEPTAL [Concomitant]
     Active Substance: OXCARBAZEPINE
     Dosage: UNK
     Dates: start: 20171005, end: 20171107

REACTIONS (1)
  - Drug ineffective for unapproved indication [Recovering/Resolving]

NARRATIVE: CASE EVENT DATE: 20171005
